FAERS Safety Report 16137909 (Version 1)
Quarter: 2019Q2

REPORT INFORMATION
  Report Type: Spontaneous
  Country: US (occurrence: US)
  Receive Date: 20190401
  Receipt Date: 20190401
  Transmission Date: 20190711
  Serious: No
  Sender: FDA-Public Use
  Company Number: US-009507513-1903USA008774

PATIENT
  Age: 56 Year
  Sex: Female

DRUGS (2)
  1. METFORMIN [Concomitant]
     Active Substance: METFORMIN HYDROCHLORIDE
  2. STEGLATRO [Suspect]
     Active Substance: ERTUGLIFLOZIN PIDOLATE
     Indication: TYPE 2 DIABETES MELLITUS
     Dosage: 5MG/ONCE DAILY
     Route: 048
     Dates: start: 20190215

REACTIONS (2)
  - Weight decreased [Not Recovered/Not Resolved]
  - Urine ketone body present [Not Recovered/Not Resolved]

NARRATIVE: CASE EVENT DATE: 2019
